FAERS Safety Report 6805296-4 (Version None)
Quarter: 2010Q2

REPORT INFORMATION
  Report Type: 
  Country: None (occurrence: None)
  Receive Date: 20100628
  Receipt Date: 20080313
  Transmission Date: 20101027
  Serious: No
  Sender: FDA-Public Use
  Company Number: US-PFIZER INC-2007090863

PATIENT
  Sex: Female
  Weight: 44 kg

DRUGS (2)
  1. XALATAN [Suspect]
     Indication: GLAUCOMA
     Dates: start: 20020101
  2. COZAAR [Concomitant]
     Indication: HYPERTENSION

REACTIONS (4)
  - ACCIDENTAL OVERDOSE [None]
  - BLOOD THYROID STIMULATING HORMONE INCREASED [None]
  - BODY HEIGHT DECREASED [None]
  - PRODUCT QUALITY ISSUE [None]
